FAERS Safety Report 5766220-9 (Version None)
Quarter: 2008Q2

REPORT INFORMATION
  Report Type: 
  Country: None (occurrence: None)
  Receive Date: 20080606
  Receipt Date: 20080529
  Transmission Date: 20081010
  Serious: Yes (Death, Other)
  Sender: FDA-Public Use
  Company Number: 2008US001270

PATIENT
  Age: 53 Year
  Sex: Female
  Weight: 53.1 kg

DRUGS (8)
  1. PROGRAF [Suspect]
     Indication: LUNG TRANSPLANT
     Dosage: 1.5, BID, ORAL
     Route: 048
     Dates: start: 20050208, end: 20080401
  2. VALCYTE [Concomitant]
  3. CELLCEPT [Concomitant]
  4. PREDNISOLONE ACETATE [Concomitant]
  5. FLUCONAZOLE [Concomitant]
  6. BACTRIM (TRIMETHOPRIM) TABLET [Concomitant]
  7. VORICONAZOLE (VORICONAZOLE) [Concomitant]
  8. ANTIBIOTICS [Concomitant]

REACTIONS (38)
  - ACINETOBACTER INFECTION [None]
  - ANURIA [None]
  - ASPERGILLOSIS [None]
  - BLOOD ALKALINE PHOSPHATASE INCREASED [None]
  - BLOOD GLUCOSE INCREASED [None]
  - BLOOD PRESSURE DECREASED [None]
  - BRONCHIOLITIS [None]
  - BRONCHITIS FUNGAL [None]
  - BRONCHOPULMONARY ASPERGILLOSIS [None]
  - CARDIAC FAILURE [None]
  - CULTURE POSITIVE [None]
  - DIARRHOEA [None]
  - DRUG TOXICITY [None]
  - EMPHYSEMA [None]
  - GENERAL PHYSICAL HEALTH DETERIORATION [None]
  - GENERALISED OEDEMA [None]
  - GRAFT DYSFUNCTION [None]
  - HAEMODIALYSIS [None]
  - HERPES SIMPLEX [None]
  - INFLUENZA [None]
  - LUNG INFECTION [None]
  - LUNG INJURY [None]
  - LUNG TRANSPLANT REJECTION [None]
  - NAUSEA [None]
  - OBLITERATIVE BRONCHIOLITIS [None]
  - PANCYTOPENIA [None]
  - PLATELET COUNT DECREASED [None]
  - PNEUMONIA [None]
  - PULMONARY OEDEMA [None]
  - RENAL FAILURE ACUTE [None]
  - RESPIRATORY FAILURE [None]
  - SCAR [None]
  - SEPTIC SHOCK [None]
  - TACHYPNOEA [None]
  - TRACHEITIS [None]
  - UNRESPONSIVE TO STIMULI [None]
  - VIRUS CULTURE POSITIVE [None]
  - VOMITING [None]
